FAERS Safety Report 6013260-0 (Version None)
Quarter: 2008Q4

REPORT INFORMATION
  Report Type: 
  Country: None (occurrence: None)
  Receive Date: 20081212
  Receipt Date: 20070625
  Transmission Date: 20090506
  Serious: Yes (Other)
  Sender: FDA-Public Use
  Company Number: 554903

PATIENT

DRUGS (2)
  1. VALIUM [Suspect]
     Indication: DRUG USE FOR UNKNOWN INDICATION
     Dates: start: 19860101
  2. ATIVAN [Suspect]
     Indication: DRUG USE FOR UNKNOWN INDICATION
     Dates: start: 19860101

REACTIONS (1)
  - WITHDRAWAL SYNDROME [None]
